FAERS Safety Report 5465356-X (Version None)
Quarter: 2007Q3

REPORT INFORMATION
  Report Type: 
  Country: None (occurrence: None)
  Receive Date: 20070920
  Receipt Date: 20070920
  Transmission Date: 20080115
  Serious: No
  Sender: FDA-Public Use
  Company Number: None

PATIENT
  Sex: Female

DRUGS (4)
  1. OXYCONTIN [Suspect]
     Indication: INTERVERTEBRAL DISC PROTRUSION
     Dosage: 40 MG
     Dates: start: 20070810
  2. HIV MEDS [Concomitant]
  3. SEROQUEL [Concomitant]
  4. DEPAKOTE [Concomitant]

REACTIONS (3)
  - NAUSEA [None]
  - STOMACH DISCOMFORT [None]
  - VOMITING [None]
